FAERS Safety Report 8719835 (Version 3)
Quarter: 2012Q4

REPORT INFORMATION
  Report Type: 
  Country: US (occurrence: US)
  Receive Date: 20120813
  Receipt Date: 20120918
  Transmission Date: 20130627
  Serious: Yes (Hospitalization)
  Sender: FDA-Public Use
  Company Number: US-BAYER-2012-079360

PATIENT
  Age: 28 Year
  Sex: Female
  Weight: 74.83 kg

DRUGS (13)
  1. YASMIN [Suspect]
     Dosage: UNK
     Dates: start: 2004, end: 201106
  2. OCELLA [Suspect]
     Dosage: UNK
     Dates: start: 2004, end: 201106
  3. ADVAIR [Concomitant]
     Indication: ASTHMA
     Dosage: UNK
     Dates: start: 1993
  4. DOXYCYCLINE [Concomitant]
     Indication: ACNE
     Dosage: UNK
     Dates: start: 20031126, end: 20120318
  5. LEXAPRO [Concomitant]
     Indication: DEPRESSION
     Dosage: 10 mg, 1 tablet everyday
     Route: 048
     Dates: start: 2007
  6. SYNTHROID [Concomitant]
     Dosage: 0.05 mcg, 1 tablet qd
     Route: 048
     Dates: start: 20100126, end: 20110628
  7. ALBUTEROL [Concomitant]
     Indication: ASTHMA
     Dosage: UNK
     Dates: start: 1993
  8. ZOCOR [Concomitant]
  9. MECLIZINE [Concomitant]
  10. ADVAIR DISKUS [Concomitant]
  11. MULTIVITAMIN [Concomitant]
     Dosage: UNK
  12. LEVOTHYROXINE [Concomitant]
     Dosage: UNK
     Dates: start: 201003
  13. SIMVASTATIN [Concomitant]
     Dosage: UNK
     Dates: start: 201003

REACTIONS (2)
  - Cerebral infarction [None]
  - Cerebellar infarction [None]
